FAERS Safety Report 23687852 (Version 1)
Quarter: 2024Q1

REPORT INFORMATION
  Report Type: Spontaneous
  Country: MX (occurrence: None)
  Receive Date: 20240329
  Receipt Date: 20240329
  Transmission Date: 20240410
  Serious: Yes (Hospitalization, Other)
  Sender: FDA-Public Use
  Company Number: 2024A072478

PATIENT
  Age: 653 Month
  Sex: Male
  Weight: 96 kg

DRUGS (3)
  1. PULMICORT TURBUHALER [Suspect]
     Active Substance: BUDESONIDE
     Indication: Chronic obstructive pulmonary disease
     Route: 055
  2. SYMBICORT [Suspect]
     Active Substance: BUDESONIDE\FORMOTEROL FUMARATE DIHYDRATE
     Indication: Chronic obstructive pulmonary disease
     Route: 055
     Dates: start: 2022
  3. PULMICORT TURBUHALER [Suspect]
     Active Substance: BUDESONIDE
     Indication: Chronic obstructive pulmonary disease
     Route: 055
     Dates: start: 2022

REACTIONS (8)
  - Device malfunction [Unknown]
  - Pneumonia bacterial [Recovering/Resolving]
  - Oxygen saturation abnormal [Recovering/Resolving]
  - Influenza [Recovering/Resolving]
  - Product taste abnormal [Unknown]
  - Chronic obstructive pulmonary disease [Unknown]
  - Device malfunction [Unknown]
  - Intentional dose omission [Unknown]

NARRATIVE: CASE EVENT DATE: 20231201
